FAERS Safety Report 10036015 (Version 2)
Quarter: 2014Q1

REPORT INFORMATION
  Report Type: Spontaneous
  Country: IL (occurrence: IL)
  Receive Date: 20140325
  Receipt Date: 20140325
  Transmission Date: 20141002
  Serious: Yes (Hospitalization, Other)
  Sender: FDA-Public Use
  Company Number: IL-ABBVIE-12P-082-0911925-00

PATIENT
  Age: 24 Year
  Sex: Male

DRUGS (1)
  1. HUMIRA 40 MG/ 0.8 ML PRE-FILLED SYRINGE [Suspect]
     Indication: CROHN^S DISEASE
     Route: 058
     Dates: start: 201109

REACTIONS (4)
  - Coronary artery occlusion [Recovering/Resolving]
  - Acute myocardial infarction [Recovering/Resolving]
  - Crohn^s disease [Recovered/Resolved]
  - Crohn^s disease [Unknown]
